FAERS Safety Report 6812200-1 (Version None)
Quarter: 2010Q3

REPORT INFORMATION
  Report Type: 
  Country: None (occurrence: None)
  Receive Date: 20100701
  Receipt Date: 20100625
  Transmission Date: 20110219
  Serious: Yes (Other)
  Sender: FDA-Public Use
  Company Number: US-SANOFI-AVENTIS-2010SA037193

PATIENT
  Age: 68 Year
  Sex: Male

DRUGS (20)
  1. LOVENOX [Suspect]
     Route: 065
     Dates: start: 20100604
  2. LOVENOX [Suspect]
     Route: 065
     Dates: start: 20100601
  3. LOVENOX [Suspect]
     Route: 065
     Dates: start: 20100518, end: 20100601
  4. PLAVIX [Suspect]
     Route: 048
     Dates: start: 20100401, end: 20100501
  5. PLAVIX [Suspect]
     Route: 048
     Dates: start: 20100525
  6. ASPIRIN [Concomitant]
     Route: 048
     Dates: end: 20100501
  7. ASPIRIN [Concomitant]
     Route: 048
     Dates: start: 20100525
  8. THYROID THERAPY [Concomitant]
  9. METOPROLOL TARTRATE [Concomitant]
  10. FLOMAX [Concomitant]
     Indication: PROSTATIC DISORDER
  11. IRON [Concomitant]
  12. MULTI-VITAMINS [Concomitant]
  13. CALCIUM CARBONATE [Concomitant]
  14. VITAMIN D [Concomitant]
  15. VITAMIN E [Concomitant]
  16. GLUCOSAMINE [Concomitant]
  17. LIPITOR [Concomitant]
     Indication: CORONARY ARTERY DISEASE
     Dates: start: 20100401
  18. FISH OIL [Concomitant]
  19. HUMIRA [Concomitant]
  20. HEPARIN [Concomitant]
     Indication: THROMBECTOMY
     Dates: start: 20100501

REACTIONS (4)
  - ASTHENIA [None]
  - EPISTAXIS [None]
  - SPEECH DISORDER [None]
  - THROMBOTIC STROKE [None]
